FAERS Safety Report 9252769 (Version 3)
Quarter: 2013Q2

REPORT INFORMATION
  Report Type: Spontaneous
  Country: US (occurrence: US)
  Receive Date: 20130424
  Receipt Date: 20130520
  Transmission Date: 20140414
  Serious: No
  Sender: FDA-Public Use
  Company Number: US-009507513-1304USA008135

PATIENT
  Age: 33 Year
  Sex: Female
  Weight: 63.49 kg

DRUGS (1)
  1. CLARITIN [Suspect]
     Indication: HYPERSENSITIVITY
     Dosage: 10 MG, QD
     Route: 048
     Dates: start: 20120501

REACTIONS (2)
  - Drug ineffective [Unknown]
  - Drug effect delayed [Unknown]
